FAERS Safety Report 16923753 (Version 2)
Quarter: 2019Q4

REPORT INFORMATION
  Report Type: Report from Study
  Country: CN (occurrence: CN)
  Receive Date: 20191016
  Receipt Date: 20191113
  Transmission Date: 20200122
  Serious: Yes (Hospitalization, Other)
  Sender: FDA-Public Use
  Company Number: NVSC2019CN001686

PATIENT
  Age: 56 Year
  Sex: Female
  Weight: 60.5 kg

DRUGS (3)
  1. CALCIUM CARBONATE WITH D3 [Concomitant]
     Active Substance: CALCIUM CARBONATE\CHOLECALCIFEROL
     Indication: PROPHYLAXIS
     Dosage: UNK
     Route: 065
     Dates: start: 20190401
  2. LETROZOLE. [Suspect]
     Active Substance: LETROZOLE
     Dosage: 2.5 MG, QD
     Route: 048
  3. LETROZOLE. [Suspect]
     Active Substance: LETROZOLE
     Indication: INVASIVE BREAST CARCINOMA
     Dosage: 2.5 MG, QD
     Route: 048
     Dates: start: 20190401, end: 20190516

REACTIONS (6)
  - Abdominal pain lower [Recovered/Resolved]
  - Abdominal pain lower [Unknown]
  - Colitis [Recovered/Resolved with Sequelae]
  - Nephrolithiasis [Recovered/Resolved]
  - Diverticulum intestinal [Recovered/Resolved]
  - Appendicitis noninfective [Recovered/Resolved]

NARRATIVE: CASE EVENT DATE: 20190602
